FAERS Safety Report 21733878 (Version 2)
Quarter: 2023Q4

REPORT INFORMATION
  Report Type: Report from Study
  Country: US (occurrence: US)
  Receive Date: 20221215
  Receipt Date: 20231219
  Transmission Date: 20240110
  Serious: Yes (Other)
  Sender: FDA-Public Use
  Company Number: US-TAKEDA-2022TUS096609

PATIENT
  Age: 55 Year
  Sex: Male

DRUGS (1)
  1. VON WILLEBRAND FACTOR (RECOMBINANT) [Suspect]
     Active Substance: VON WILLEBRAND FACTOR (RECOMBINANT)
     Indication: Product used for unknown indication
     Dosage: 2600 INTERNATIONAL UNIT
     Route: 042

REACTIONS (2)
  - Gastrointestinal haemorrhage [Unknown]
  - Post procedural complication [Unknown]

NARRATIVE: CASE EVENT DATE: 20221015
